FAERS Safety Report 5763727-5 (Version None)
Quarter: 2008Q2

REPORT INFORMATION
  Report Type: 
  Country: None (occurrence: None)
  Receive Date: 20080610
  Receipt Date: 20080605
  Transmission Date: 20081010
  Serious: Yes (Hospitalization, Other)
  Sender: FDA-Public Use
  Company Number: DE-BRISTOL-MYERS SQUIBB COMPANY-14173520

PATIENT
  Age: 60 Year
  Sex: Male

DRUGS (3)
  1. REYATAZ [Suspect]
     Indication: HIV INFECTION
     Route: 048
     Dates: start: 20050214
  2. TRUVADA [Suspect]
     Indication: HIV INFECTION
     Dosage: 1 DOSAGE FORM = TENOFOVIR 245 MG + EMTRICITABINE 200 MG.
     Route: 048
     Dates: start: 20050214
  3. NORVIR [Suspect]
     Indication: HIV INFECTION
     Dates: start: 20050214

REACTIONS (1)
  - CONGESTIVE CARDIOMYOPATHY [None]
